FAERS Safety Report 10818581 (Version 1)
Quarter: 2015Q1

REPORT INFORMATION
  Report Type: Spontaneous
  Country: PE (occurrence: PE)
  Receive Date: 20150218
  Receipt Date: 20150218
  Transmission Date: 20150721
  Serious: Yes (Hospitalization)
  Sender: FDA-Public Use
  Company Number: PE-PFIZER INC-2015025150

PATIENT
  Age: 87 Year
  Sex: Female

DRUGS (3)
  1. LYRICA [Suspect]
     Active Substance: PREGABALIN
     Indication: NEURALGIA
     Dosage: UNK
  2. ADALAT [Concomitant]
     Active Substance: NIFEDIPINE
     Dosage: 60 MG, 1X/DAY
  3. VALSARTAN. [Concomitant]
     Active Substance: VALSARTAN
     Dosage: 50 MG, 2X/DAY

REACTIONS (2)
  - Urinary tract infection [Recovered/Resolved]
  - Hypertension [Recovered/Resolved]
